FAERS Safety Report 4817575-0 (Version None)
Quarter: 2005Q4

REPORT INFORMATION
  Report Type: 
  Country: None (occurrence: None)
  Receive Date: 20051031
  Receipt Date: 20051017
  Transmission Date: 20060501
  Serious: Yes (Life-Threatening, Hospitalization)
  Sender: FDA-Public Use
  Company Number: 2005P1000433

PATIENT
  Age: 84 Year
  Sex: Male
  Weight: 80 kg

DRUGS (9)
  1. RETEPLASE         (RETEPLASE) [Suspect]
     Indication: ACUTE MYOCARDIAL INFARCTION
     Dosage: IV
     Route: 042
     Dates: start: 20050909, end: 20050909
  2. ABCIXIMAB           (ABCIXIMAB) [Suspect]
     Dosage: IV
     Route: 042
     Dates: start: 20050908
  3. CARVEDILOL [Concomitant]
  4. PERINDOPRIL [Concomitant]
  5. ATORVASTATIN CALCIUM [Concomitant]
  6. INSULIN [Concomitant]
  7. RANITIDINE [Concomitant]
  8. CLOPIDOGREL BISULFATE [Concomitant]
  9. ASPIRIN [Concomitant]

REACTIONS (2)
  - ANGINA UNSTABLE [None]
  - VENTRICULAR FIBRILLATION [None]
